FAERS Safety Report 4823547-2 (Version None)
Quarter: 2005Q4

REPORT INFORMATION
  Report Type: 
  Country: None (occurrence: None)
  Receive Date: 20051107
  Receipt Date: 20050706
  Transmission Date: 20060501
  Serious: Yes (Hospitalization)
  Sender: FDA-Public Use
  Company Number: 200505831

PATIENT
  Age: 30 Month
  Sex: Female
  Weight: 12.7007 kg

DRUGS (8)
  1. BOTOX [Suspect]
     Indication: MUSCLE SPASTICITY
  2. BOTOX [Suspect]
     Indication: MUSCLE SPASTICITY
     Dosage: 200 UNITS ONCE IM
     Route: 030
     Dates: start: 20050328
  3. BOTOX [Suspect]
     Indication: MUSCLE SPASTICITY
     Dosage: 200 UNITS ONCE IM
     Route: 030
     Dates: start: 20050103
  4. TRILEPTOL [Concomitant]
  5. MIRALAX [Concomitant]
  6. KEPPRA [Concomitant]
  7. ZONEGRAN [Concomitant]
  8. DILANTIN [Concomitant]

REACTIONS (15)
  - ABNORMAL BEHAVIOUR [None]
  - AGGRESSION [None]
  - ANTICONVULSANT DRUG LEVEL DECREASED [None]
  - BODY TEMPERATURE INCREASED [None]
  - CONDITION AGGRAVATED [None]
  - CONVULSION [None]
  - FLUSHING [None]
  - LETHARGY [None]
  - MENTAL STATUS CHANGES [None]
  - MUSCLE TWITCHING [None]
  - NYSTAGMUS [None]
  - STATUS EPILEPTICUS [None]
  - STEREOTYPY [None]
  - STRABISMUS [None]
  - VOMITING [None]
